FAERS Safety Report 5394872-4 (Version None)
Quarter: 2007Q3

REPORT INFORMATION
  Report Type: 
  Country: None (occurrence: None)
  Receive Date: 20070720
  Receipt Date: 20070706
  Transmission Date: 20080115
  Serious: Yes (Hospitalization, Other)
  Sender: FDA-Public Use
  Company Number: 2007AL002603

PATIENT
  Age: 37 Year
  Sex: Male
  Weight: 79.6 kg

DRUGS (15)
  1. DIAZEPAM TAB [Suspect]
     Indication: PANIC ATTACK
     Dates: start: 20011019, end: 20040101
  2. SILDENAFIL CITRATE [Concomitant]
  3. SIMVASTATIN [Concomitant]
  4. ARIPIPRAZOLE [Concomitant]
  5. MIRTAZAPINE [Concomitant]
  6. TEMAZEPAM [Concomitant]
  7. CO-DYDRAMOL [Concomitant]
  8. QVAR 40 [Concomitant]
  9. LEVEMIR [Concomitant]
  10. SALBUTAMOL [Concomitant]
  11. CODEINE PHOSPHATE AND ACETAMINOPHEN [Concomitant]
  12. FLUPENTIXOL [Concomitant]
  13. TRIPTAFEN [Concomitant]
  14. INSULIN [Concomitant]
  15. RISPERDAL [Concomitant]

REACTIONS (12)
  - ANXIETY [None]
  - DEPRESSION [None]
  - DIABETIC COMA [None]
  - FALL [None]
  - HALLUCINATION, AUDITORY [None]
  - IRRITABILITY [None]
  - MALAISE [None]
  - MOOD SWINGS [None]
  - PANIC ATTACK [None]
  - PARANOIA [None]
  - POOR QUALITY SLEEP [None]
  - TYPE 1 DIABETES MELLITUS [None]
